FAERS Safety Report 24936812 (Version 2)
Quarter: 2025Q1

REPORT INFORMATION
  Report Type: Spontaneous
  Country: CA (occurrence: CA)
  Receive Date: 20250206
  Receipt Date: 20250331
  Transmission Date: 20250408
  Serious: Yes (Other)
  Sender: TAKEDA
  Company Number: CA-TAKEDA-2025TUS012555

PATIENT
  Age: 21 Year
  Sex: Male

DRUGS (15)
  1. CANDESARTAN [Suspect]
     Active Substance: CANDESARTAN
     Indication: Familial mediterranean fever
     Dosage: 2 MILLIGRAM, QD
  2. COLCHICINE [Suspect]
     Active Substance: COLCHICINE
     Indication: Familial mediterranean fever
     Dosage: 0.6 MILLIGRAM, TID
  3. ONDANSETRON [Suspect]
     Active Substance: ONDANSETRON
     Indication: Familial mediterranean fever
  4. FAMOTIDINE [Suspect]
     Active Substance: FAMOTIDINE
     Indication: Familial mediterranean fever
     Dosage: 40 MILLIGRAM, QD
  5. FOLIC ACID [Suspect]
     Active Substance: FOLIC ACID
     Indication: Familial mediterranean fever
     Dosage: 4 MILLIGRAM, QD
  6. NAPROXEN [Suspect]
     Active Substance: NAPROXEN
     Indication: Familial mediterranean fever
  7. ZOFRAN [Suspect]
     Active Substance: ONDANSETRON HYDROCHLORIDE
     Indication: Familial mediterranean fever
  8. DEXILANT [Concomitant]
     Active Substance: DEXLANSOPRAZOLE
     Indication: Product used for unknown indication
     Dosage: 60 MILLIGRAM, QD
  9. FLUDROCORTISONE [Concomitant]
     Active Substance: FLUDROCORTISONE
     Indication: Product used for unknown indication
     Dosage: 0.1 MILLIGRAM, QD
  10. GABAPENTIN [Concomitant]
     Active Substance: GABAPENTIN
     Indication: Product used for unknown indication
     Dosage: 900 MILLIGRAM, QD
  11. IVABRADINE HYDROCHLORIDE [Concomitant]
     Active Substance: IVABRADINE HYDROCHLORIDE
     Indication: Product used for unknown indication
  12. MIDODRINE [Concomitant]
     Active Substance: MIDODRINE
     Indication: Product used for unknown indication
     Dosage: 5 MILLIGRAM, QD
  13. PRUCALOPRIDE SUCCINATE [Concomitant]
     Active Substance: PRUCALOPRIDE SUCCINATE
     Indication: Product used for unknown indication
     Dosage: 4 MILLIGRAM, QD
  14. SULFASALAZINE [Concomitant]
     Active Substance: SULFASALAZINE
     Indication: Product used for unknown indication
     Dosage: 1000 MILLIGRAM, QD
  15. KINERET [Concomitant]
     Active Substance: ANAKINRA
     Indication: Product used for unknown indication
     Dosage: 100 MILLIGRAM, QD

REACTIONS (2)
  - Serum amyloid A protein increased [Unknown]
  - Off label use [Unknown]

NARRATIVE: CASE EVENT DATE: 20230824
